FAERS Safety Report 6795528-3 (Version None)
Quarter: 2010Q2

REPORT INFORMATION
  Report Type: 
  Country: None (occurrence: None)
  Receive Date: 20100625
  Receipt Date: 20100606
  Transmission Date: 20101027
  Serious: No
  Sender: FDA-Public Use
  Company Number: US-TEVA-238513USA

PATIENT
  Sex: Female
  Weight: 63.56 kg

DRUGS (1)
  1. SALBUTAMOL SULFATE INHALATION, 0.09 MG [Suspect]
     Route: 055
     Dates: start: 20100608

REACTIONS (1)
  - DRUG INEFFECTIVE [None]
